FAERS Safety Report 19144561 (Version 1)
Quarter: 2021Q2

REPORT INFORMATION
  Report Type: Spontaneous
  Country: US (occurrence: US)
  Receive Date: 20210415
  Receipt Date: 20210415
  Transmission Date: 20210717
  Serious: Yes (Hospitalization)
  Sender: FDA-Public Use
  Company Number: None

PATIENT
  Age: 64 Year
  Sex: Male

DRUGS (13)
  1. CAPECITABINE, 500 AND 150 MG [Suspect]
     Active Substance: CAPECITABINE
     Indication: BREAST CANCER
     Route: 048
     Dates: start: 20210122, end: 20210331
  2. MELANTONIN [Concomitant]
  3. VITAMIN B COMPLEX [Concomitant]
     Active Substance: CYANOCOBALAMIN\DEXPANTHENOL\NIACINAMIDE\PYRIDOXINE HYDROCHLORIDE\RIBOFLAVIN 5^-PHOSPHATE SODIUM\THIAMINE HYDROCHLORIDE\VITAMIN B COMPLEX
  4. HUMALOG [Concomitant]
     Active Substance: INSULIN LISPRO
  5. ALMESARTAN/AMLODIPINE/HCTZ [Concomitant]
  6. FUROSEMIDE. [Concomitant]
     Active Substance: FUROSEMIDE
  7. ELIQUIS [Concomitant]
     Active Substance: APIXABAN
  8. POTASSIUM [Concomitant]
     Active Substance: POTASSIUM
  9. LOSARTAN. [Concomitant]
     Active Substance: LOSARTAN
  10. LORAZEPAM. [Concomitant]
     Active Substance: LORAZEPAM
  11. XGEVA [Concomitant]
     Active Substance: DENOSUMAB
  12. CLARLTIN D [Concomitant]
  13. LANTUS [Concomitant]
     Active Substance: INSULIN GLARGINE

REACTIONS (6)
  - Skin burning sensation [None]
  - Skin discolouration [None]
  - Skin toxicity [None]
  - Therapy interrupted [None]
  - Deep vein thrombosis [None]
  - Palmar-plantar erythrodysaesthesia syndrome [None]

NARRATIVE: CASE EVENT DATE: 20210401
